FAERS Safety Report 6910033-9 (Version None)
Quarter: 2010Q3

REPORT INFORMATION
  Report Type: 
  Country: None (occurrence: None)
  Receive Date: 20100806
  Receipt Date: 20100727
  Transmission Date: 20110219
  Serious: Yes (Other)
  Sender: FDA-Public Use
  Company Number: US-CELGENEUS-163-21880-10032787

PATIENT
  Sex: Male

DRUGS (2)
  1. REVLIMID [Suspect]
     Indication: MULTIPLE MYELOMA
     Route: 048
     Dates: start: 20100211
  2. REVLIMID [Suspect]
     Route: 048
     Dates: start: 20091101

REACTIONS (10)
  - BACK PAIN [None]
  - CHEST PAIN [None]
  - GAIT DISTURBANCE [None]
  - HAEMORRHAGE [None]
  - HYPOAESTHESIA [None]
  - INFLUENZA LIKE ILLNESS [None]
  - NAUSEA [None]
  - OEDEMA PERIPHERAL [None]
  - THROMBOSIS [None]
  - TREMOR [None]
